FAERS Safety Report 5318631-3 (Version None)
Quarter: 2007Q2

REPORT INFORMATION
  Report Type: 
  Country: None (occurrence: None)
  Receive Date: 20070508
  Receipt Date: 20070427
  Transmission Date: 20071010
  Serious: Yes (Other)
  Sender: FDA-Public Use
  Company Number: PHEH2007US06482

PATIENT
  Age: 70 Year
  Sex: Male

DRUGS (4)
  1. DIOVAN [Suspect]
     Indication: HYPERTENSION
     Dosage: 80 MG, QD
     Route: 048
  2. COREG [Concomitant]
     Dosage: UNK, UNK
  3. NIFEDIPINE [Concomitant]
     Dosage: UNK, UNK
  4. ASPIRIN [Concomitant]
     Dosage: 81MG, UNK

REACTIONS (4)
  - ATRIAL FIBRILLATION [None]
  - CARDIAC STRESS TEST ABNORMAL [None]
  - ECHOCARDIOGRAM ABNORMAL [None]
  - ELECTROCARDIOGRAM ABNORMAL [None]
